FAERS Safety Report 24409912 (Version 1)
Quarter: 2024Q4

REPORT INFORMATION
  Report Type: Spontaneous
  Country: US (occurrence: US)
  Receive Date: 20241008
  Receipt Date: 20241008
  Transmission Date: 20250114
  Serious: No
  Sender: AMGEN
  Company Number: US-AMGEN-USASP2024197793

PATIENT
  Sex: Female

DRUGS (1)
  1. TEPEZZA [Suspect]
     Active Substance: TEPROTUMUMAB-TRBW
     Indication: Product used for unknown indication
     Dosage: UNK
     Route: 065
     Dates: start: 20240409, end: 20240906

REACTIONS (5)
  - Muscle spasms [Recovered/Resolved]
  - Dehydration [Unknown]
  - Alopecia [Unknown]
  - Hypoacusis [Recovered/Resolved]
  - Adverse event [Unknown]
